FAERS Safety Report 6360588-0 (Version None)
Quarter: 2009Q3

REPORT INFORMATION
  Report Type: 
  Country: None (occurrence: None)
  Receive Date: 20090915
  Receipt Date: 20090903
  Transmission Date: 20100115
  Serious: Yes (Hospitalization)
  Sender: FDA-Public Use
  Company Number: 1-19751194

PATIENT
  Sex: Female

DRUGS (2)
  1. FAMOTIDINE [Suspect]
     Indication: GASTRIC PH DECREASED
     Dosage: 20-80 MG TWICE DAILY, ORAL
     Route: 048
  2. INDAPAMIDE (DIURETIC) [Concomitant]

REACTIONS (11)
  - BURNING SENSATION [None]
  - DEHYDRATION [None]
  - DRY EYE [None]
  - DRY MOUTH [None]
  - EAR INFECTION BACTERIAL [None]
  - GASTRIC PH DECREASED [None]
  - LIP DRY [None]
  - LIP SWELLING [None]
  - PRESYNCOPE [None]
  - PRODUCT SUBSTITUTION ISSUE [None]
  - RASH [None]
